FAERS Safety Report 17868264 (Version 1)
Quarter: 2020Q2

REPORT INFORMATION
  Report Type: Spontaneous
  Country: CN (occurrence: CN)
  Receive Date: 20200605
  Receipt Date: 20200605
  Transmission Date: 20200714
  Serious: Yes (Hospitalization, Other)
  Sender: FDA-Public Use
  Company Number: CN-BAXTER-2020BAX011496

PATIENT
  Age: 48 Year
  Sex: Female
  Weight: 52.5 kg

DRUGS (8)
  1. SODIUM CHLORIDE. [Suspect]
     Active Substance: SODIUM CHLORIDE
     Indication: MEDICATION DILUTION
     Dosage: ENDOXAN 0.9 G + SODIUM CHLORIDE 30 ML, ONE DOSE
     Route: 042
     Dates: start: 20200410, end: 20200410
  2. DOXORUBICIN LIPOSOME [Suspect]
     Active Substance: DOXORUBICIN
     Indication: BREAST CANCER STAGE I
     Dosage: SELF PREPARED DRUG, DOXORUBICIN LIPOSOME 50 MG + 5% GLUCOSE 250 ML, ONE DOSE
     Route: 041
     Dates: start: 20200410, end: 20200410
  3. ENDOXAN [Suspect]
     Active Substance: CYCLOPHOSPHAMIDE
     Indication: INVASIVE BREAST CARCINOMA
     Dosage: ENDOXAN 0.9 G + SODIUM CHLORIDE 30 ML, ONE DOSE
     Route: 042
     Dates: start: 20200502, end: 20200502
  4. 5% GLUCOSE  INJECTION [Suspect]
     Active Substance: DEXTROSE
     Indication: MEDICATION DILUTION
     Dosage: DOXORUBICIN LIPOSOME 50 MG + 5% GLUCOSE 250 ML, ONE DOSE
     Route: 041
     Dates: start: 20200410, end: 20200410
  5. DOXORUBICIN LIPOSOME [Suspect]
     Active Substance: DOXORUBICIN
     Indication: INVASIVE BREAST CARCINOMA
     Dosage: SELF PREPARED DRUG, DOXORUBICIN LIPOSOME 50 MG + 5% GLUCOSE 250 ML, ONE DOSE
     Route: 041
     Dates: start: 20200502, end: 20200502
  6. ENDOXAN [Suspect]
     Active Substance: CYCLOPHOSPHAMIDE
     Indication: BREAST CANCER STAGE I
     Dosage: ENDOXAN 0.9 G + SODIUM CHLORIDE 30 ML, ONE DOSE
     Route: 042
     Dates: start: 20200410, end: 20200410
  7. 5% GLUCOSE  INJECTION [Suspect]
     Active Substance: DEXTROSE
     Dosage: DOXORUBICIN LIPOSOME 50 MG + 5% GLUCOSE 250 ML, ONE DOSE
     Route: 041
     Dates: start: 20200502, end: 20200502
  8. SODIUM CHLORIDE. [Suspect]
     Active Substance: SODIUM CHLORIDE
     Dosage: ENDOXAN 0.9 G + SODIUM CHLORIDE 30 ML, ONE DOSE
     Route: 042
     Dates: start: 20200502, end: 20200502

REACTIONS (3)
  - Hepatic function abnormal [Unknown]
  - Drug-induced liver injury [Unknown]
  - Anaemia [Unknown]

NARRATIVE: CASE EVENT DATE: 202005
